FAERS Safety Report 20299791 (Version 1)
Quarter: 2022Q1

REPORT INFORMATION
  Report Type: Spontaneous
  Country: US (occurrence: US)
  Receive Date: 20220105
  Receipt Date: 20220105
  Transmission Date: 20220423
  Serious: No
  Sender: FDA-Public Use
  Company Number: US-SIGMAPHARM LABORATORIES, LLC-2021SIG00043

PATIENT
  Sex: Female

DRUGS (1)
  1. LIOTHYRONINE SODIUM [Suspect]
     Active Substance: LIOTHYRONINE SODIUM
     Dosage: 12.5 MG, 2X/DAY

REACTIONS (4)
  - Drug hypersensitivity [Not Recovered/Not Resolved]
  - Product physical issue [Not Recovered/Not Resolved]
  - Product administration error [Not Recovered/Not Resolved]
  - Unevaluable event [Recovered/Resolved]
